FAERS Safety Report 10046330 (Version 1)
Quarter: 2014Q1

REPORT INFORMATION
  Report Type: Spontaneous
  Country: US (occurrence: US)
  Receive Date: 20140331
  Receipt Date: 20140331
  Transmission Date: 20141002
  Serious: No
  Sender: FDA-Public Use
  Company Number: US-BIOGENIDEC-2014BI027193

PATIENT
  Age: 44 Year
  Sex: Male
  Weight: 72 kg

DRUGS (9)
  1. TECFIDERA [Suspect]
     Indication: PRODUCT USED FOR UNKNOWN INDICATION
     Route: 048
  2. CLONAZEPAM [Concomitant]
  3. GABAPENTIN [Concomitant]
  4. NIACIN SR [Concomitant]
  5. ADVIL [Concomitant]
  6. MAGNESIUM [Concomitant]
  7. COQ-10 [Concomitant]
  8. FISH OIL [Concomitant]
  9. B COMPLEX [Concomitant]

REACTIONS (3)
  - Dyspnoea [Unknown]
  - Constipation [Unknown]
  - Abdominal distension [Unknown]
